FAERS Safety Report 18328815 (Version 2)
Quarter: 2021Q1

REPORT INFORMATION
  Report Type: Spontaneous
  Country: US (occurrence: US)
  Receive Date: 20200930
  Receipt Date: 20210108
  Transmission Date: 20210419
  Serious: Yes (Hospitalization, Other)
  Sender: FDA-Public Use
  Company Number: US-DRREDDYS-USA/USA/20/0127342

PATIENT
  Age: 36 Year
  Sex: Female

DRUGS (4)
  1. LAMOTRIGINE TABLETS [Suspect]
     Active Substance: LAMOTRIGINE
     Indication: BIPOLAR DISORDER
     Route: 048
  2. OXYCODONE [Suspect]
     Active Substance: OXYCODONE
     Indication: MIGRAINE
     Dosage: PRO RE NATA (PRN).
  3. OXYCODONE [Suspect]
     Active Substance: OXYCODONE
     Dosage: BEDTIME PRO RE NATA (PRN), OXYCODONE IMMEDIATE RELEASE
     Route: 048
  4. OXYCODONE [Suspect]
     Active Substance: OXYCODONE
     Dosage: OXYCODONE EXTENDED RELEASE

REACTIONS (5)
  - Weight decreased [Unknown]
  - Meningitis aseptic [Recovering/Resolving]
  - Medication overuse headache [Recovered/Resolved]
  - Drug abuse [Recovered/Resolved]
  - Bedridden [Recovering/Resolving]
